FAERS Safety Report 12805784 (Version 1)
Quarter: 2016Q4

REPORT INFORMATION
  Report Type: Spontaneous
  Country: US (occurrence: US)
  Receive Date: 20161003
  Receipt Date: 20161003
  Transmission Date: 20170207
  Serious: Yes (Hospitalization, Disabling, Other)
  Sender: FDA-Public Use
  Company Number: None

PATIENT
  Age: 44 Year
  Sex: Male
  Weight: 202.95 kg

DRUGS (4)
  1. LEVOFLOXACIN 500 MG TABLET AUROBINDO PHARM [Suspect]
     Active Substance: LEVOFLOXACIN
     Indication: PNEUMONIA
     Dosage: ?          QUANTITY:10 TABLET(S);?
     Route: 048
     Dates: start: 20160524, end: 20160531
  2. VITAMIN D [Concomitant]
     Active Substance: CHOLECALCIFEROL
  3. ADVIL [Concomitant]
     Active Substance: IBUPROFEN
  4. NEURONTIN [Concomitant]
     Active Substance: GABAPENTIN

REACTIONS (4)
  - Paralysis [None]
  - Dyspnoea [None]
  - Chest pain [None]
  - Neuropathy peripheral [None]

NARRATIVE: CASE EVENT DATE: 20160524
